FAERS Safety Report 23403089 (Version 2)
Quarter: 2024Q1

REPORT INFORMATION
  Report Type: Report from Study
  Country: ES (occurrence: ES)
  Receive Date: 20240116
  Receipt Date: 20240117
  Transmission Date: 20240410
  Serious: Yes (Death, Other)
  Sender: FDA-Public Use
  Company Number: ES-ABBVIE-5582811

PATIENT
  Age: 72 Year
  Sex: Male
  Weight: 75 kg

DRUGS (2)
  1. CARBIDOPA\LEVODOPA [Suspect]
     Active Substance: CARBIDOPA\LEVODOPA
     Indication: Parkinson^s disease
     Route: 050
     Dates: start: 20220519
  2. CARBIDOPA\LEVODOPA [Suspect]
     Active Substance: CARBIDOPA\LEVODOPA

REACTIONS (10)
  - Colon cancer [Fatal]
  - Weight decreased [Not Recovered/Not Resolved]
  - Diarrhoea haemorrhagic [Unknown]
  - Aggression [Unknown]
  - Internal haemorrhage [Fatal]
  - Melaena [Not Recovered/Not Resolved]
  - Agitation [Unknown]
  - Decreased appetite [Unknown]
  - Anaemia [Not Recovered/Not Resolved]
  - Hypophagia [Unknown]

NARRATIVE: CASE EVENT DATE: 20230101
